FAERS Safety Report 7398196-5 (Version None)
Quarter: 2011Q2

REPORT INFORMATION
  Report Type: 
  Country: None (occurrence: None)
  Receive Date: 20110406
  Receipt Date: 20110401
  Transmission Date: 20111010
  Serious: Yes (Other)
  Sender: FDA-Public Use
  Company Number: US-ABBOTT-11P-163-0716108-00

PATIENT
  Sex: Male
  Weight: 94.886 kg

DRUGS (9)
  1. NEXIUM [Concomitant]
     Indication: GASTROOESOPHAGEAL REFLUX DISEASE
  2. FLOR-Q [Concomitant]
     Indication: MEDICAL DIET
  3. HYOMAX-SL [Concomitant]
     Indication: GASTROINTESTINAL PAIN
  4. HUMIRA [Suspect]
     Indication: CROHN'S DISEASE
     Dates: start: 20110325, end: 20110325
  5. ASPIRIN [Concomitant]
     Dates: start: 20110331
  6. METOZOLV [Concomitant]
     Indication: DYSPEPSIA
  7. MULTI-VITAMIN [Concomitant]
     Indication: VITAMIN SUPPLEMENTATION
  8. ASPIRIN [Concomitant]
     Indication: CARDIAC DISORDER
     Dates: end: 20110331
  9. TRILIPIX [Concomitant]
     Indication: BLOOD CHOLESTEROL INCREASED

REACTIONS (6)
  - DIZZINESS [None]
  - HYPOAESTHESIA [None]
  - DISORIENTATION [None]
  - LOW DENSITY LIPOPROTEIN INCREASED [None]
  - CEREBROVASCULAR ACCIDENT [None]
  - DIVERTICULITIS [None]
